FAERS Safety Report 18480963 (Version 2)
Quarter: 2020Q4

REPORT INFORMATION
  Report Type: Spontaneous
  Country: US (occurrence: US)
  Receive Date: 20201109
  Receipt Date: 20201120
  Transmission Date: 20210114
  Serious: Yes (Hospitalization, Other)
  Sender: FDA-Public Use
  Company Number: US-ALEMBIC PHARMACUETICALS LIMITED-2020SCAL000477

PATIENT

DRUGS (9)
  1. FLUOXETINE HYDROCHLORIDE. [Suspect]
     Active Substance: FLUOXETINE HYDROCHLORIDE
     Indication: POST-TRAUMATIC STRESS DISORDER
     Dosage: 20 MG, QD FOR 2 YEARS
  2. CLONIDINE HYDROCHLORIDE. [Suspect]
     Active Substance: CLONIDINE HYDROCHLORIDE
     Indication: PSYCHIATRIC SYMPTOM
     Dosage: 0.3 MILLIGRAM, OD
  3. ARIPIPRAZOLE. [Suspect]
     Active Substance: ARIPIPRAZOLE
     Indication: ATTENTION DEFICIT HYPERACTIVITY DISORDER
     Dosage: 2.5 MILLIGRAM, OD
  4. ARIPIPRAZOLE. [Suspect]
     Active Substance: ARIPIPRAZOLE
     Indication: POST-TRAUMATIC STRESS DISORDER
  5. ARIPIPRAZOLE. [Suspect]
     Active Substance: ARIPIPRAZOLE
     Indication: PSYCHIATRIC SYMPTOM
  6. CYPROHEPTADINE. [Suspect]
     Active Substance: CYPROHEPTADINE
     Indication: INCREASED APPETITE
     Dosage: 12 MG, QD FOR 6 MONTHS
  7. CLONIDINE HYDROCHLORIDE. [Suspect]
     Active Substance: CLONIDINE HYDROCHLORIDE
     Indication: ATTENTION DEFICIT HYPERACTIVITY DISORDER
     Dosage: 0.2 MILLIGRAM, BID
  8. CLONIDINE HYDROCHLORIDE. [Suspect]
     Active Substance: CLONIDINE HYDROCHLORIDE
     Indication: POST-TRAUMATIC STRESS DISORDER
     Dosage: 0.4 MILLIGRAM, OD
  9. ONDANSETRON [Suspect]
     Active Substance: ONDANSETRON
     Indication: PRODUCT USED FOR UNKNOWN INDICATION
     Dosage: UNK
     Route: 042

REACTIONS (36)
  - Condition aggravated [Recovering/Resolving]
  - Hypertension [Recovering/Resolving]
  - Abdominal pain [Recovering/Resolving]
  - Bradyphrenia [Recovering/Resolving]
  - Blood lactate dehydrogenase increased [Recovering/Resolving]
  - Posturing [Recovering/Resolving]
  - Muscle rigidity [Recovering/Resolving]
  - Clonus [Recovering/Resolving]
  - Stereotypy [Recovering/Resolving]
  - Behaviour disorder [Recovering/Resolving]
  - Agitation [Recovering/Resolving]
  - Echopraxia [Recovering/Resolving]
  - Staring [Recovering/Resolving]
  - Abnormal behaviour [Recovering/Resolving]
  - Disorientation [Recovering/Resolving]
  - Tremor [Recovering/Resolving]
  - Drooling [Recovering/Resolving]
  - Mydriasis [Recovering/Resolving]
  - Akathisia [Recovering/Resolving]
  - Oropharyngeal pain [Recovering/Resolving]
  - Tachycardia [Recovering/Resolving]
  - Bradykinesia [Recovering/Resolving]
  - Gait disturbance [Recovering/Resolving]
  - Mental status changes [Recovering/Resolving]
  - Serotonin syndrome [Recovering/Resolving]
  - Slow response to stimuli [Recovering/Resolving]
  - Slow speech [Recovering/Resolving]
  - Headache [Recovering/Resolving]
  - Photophobia [Recovering/Resolving]
  - Aggression [Recovering/Resolving]
  - Neuroleptic malignant syndrome [Recovering/Resolving]
  - Blood creatine phosphokinase increased [Recovering/Resolving]
  - Cogwheel rigidity [Recovering/Resolving]
  - Hypertonia [Recovering/Resolving]
  - Urinary incontinence [Recovering/Resolving]
  - Drug withdrawal syndrome [Recovering/Resolving]
